FAERS Safety Report 5504240-X (Version None)
Quarter: 2007Q4

REPORT INFORMATION
  Report Type: 
  Country: None (occurrence: None)
  Receive Date: 20071101
  Receipt Date: 20071023
  Transmission Date: 20080405
  Serious: Yes (Hospitalization)
  Sender: FDA-Public Use
  Company Number: IN-GILEAD-2007-0013932

PATIENT
  Age: 45 Year
  Sex: Male
  Weight: 59.7 kg

DRUGS (6)
  1. EMTRICITABINE [Suspect]
     Indication: HIV INFECTION
     Route: 048
     Dates: start: 20070529
  2. ATAZANAVIR SULFATE [Suspect]
     Route: 048
     Dates: start: 20070529
  3. DIDANOSINE [Suspect]
     Route: 048
     Dates: start: 20070529
  4. CO TRIMOXAZOLE [Concomitant]
  5. PYRIMETHAMINE [Concomitant]
  6. MULTI-VITAMIN [Concomitant]

REACTIONS (1)
  - ASCITES [None]
